FAERS Safety Report 4959782-2 (Version None)
Quarter: 2006Q1

REPORT INFORMATION
  Report Type: 
  Country: None (occurrence: None)
  Receive Date: 20060331
  Receipt Date: 20051108
  Transmission Date: 20060701
  Serious: Yes (Hospitalization)
  Sender: FDA-Public Use
  Company Number: US-BOEHRINGER INGELHEIM PHARMACEUTICALS, INC.-2005-BP-19578BP

PATIENT
  Sex: Female

DRUGS (9)
  1. SPIRIVA [Suspect]
     Indication: CHRONIC OBSTRUCTIVE PULMONARY DISEASE
     Route: 055
     Dates: start: 20051018, end: 20051104
  2. SPIRIVA [Suspect]
     Route: 055
     Dates: start: 20051105
  3. SPIRIVA [Suspect]
     Route: 055
     Dates: start: 20060101, end: 20060301
  4. THEOPHYLLINE [Concomitant]
     Route: 048
  5. BRETHINE [Concomitant]
  6. LORAZEPAM [Concomitant]
  7. TERBUTALINE [Concomitant]
  8. XOPENEX [Concomitant]
  9. PROTONIX [Concomitant]

REACTIONS (11)
  - CHOKING [None]
  - COUGH [None]
  - DRY MOUTH [None]
  - DRY THROAT [None]
  - GINGIVAL PAIN [None]
  - GLOSSODYNIA [None]
  - HAEMOPTYSIS [None]
  - ORAL CANDIDIASIS [None]
  - TONGUE DISCOLOURATION [None]
  - VISION BLURRED [None]
  - WEIGHT DECREASED [None]
